FAERS Safety Report 4650142-0 (Version None)
Quarter: 2005Q2

REPORT INFORMATION
  Report Type: 
  Country: None (occurrence: None)
  Receive Date: 20050428
  Receipt Date: 20050412
  Transmission Date: 20051028
  Serious: Yes (Other)
  Sender: FDA-Public Use
  Company Number: A-CH2004-08438

PATIENT
  Age: 3 Year
  Sex: Female
  Weight: 10.2 kg

DRUGS (2)
  1. ZAVESCA [Suspect]
     Indication: GAUCHER'S DISEASE
     Dosage: SEE IMAGE
     Route: 048
     Dates: start: 20041109
  2. ZAVESCA [Suspect]
     Indication: GAUCHER'S DISEASE
     Dosage: SEE IMAGE
     Route: 048
     Dates: start: 20050201

REACTIONS (9)
  - ABDOMINAL DISTENSION [None]
  - DEAFNESS [None]
  - DIARRHOEA [None]
  - DYSPHAGIA [None]
  - GASTROINTESTINAL HYPERMOTILITY [None]
  - MEDICATION ERROR [None]
  - OFF LABEL USE [None]
  - PROCEDURAL COMPLICATION [None]
  - SPEECH DISORDER DEVELOPMENTAL [None]
